FAERS Safety Report 9045560 (Version 1)
Quarter: 2013Q1

REPORT INFORMATION
  Report Type: Spontaneous
  Country: US (occurrence: US)
  Receive Date: 20130131
  Receipt Date: 20130131
  Transmission Date: 20140127
  Serious: No
  Sender: FDA-Public Use
  Company Number: US-PFIZER INC-2013041422

PATIENT
  Age: 63 Year
  Sex: Female
  Weight: 106.58 kg

DRUGS (1)
  1. CHANTIX [Suspect]
     Indication: SMOKING CESSATION THERAPY
     Dosage: UNK, 1X/DAY
     Route: 048
     Dates: start: 201301, end: 201301

REACTIONS (2)
  - Gastroenteritis viral [Unknown]
  - Vomiting [Unknown]
